FAERS Safety Report 7659420-4 (Version None)
Quarter: 2011Q3

REPORT INFORMATION
  Report Type: 
  Country: None (occurrence: None)
  Receive Date: 20110805
  Receipt Date: 20110727
  Transmission Date: 20111222
  Serious: Yes (Hospitalization)
  Sender: FDA-Public Use
  Company Number: US-PURDUE-GBR-2011-0008589

PATIENT
  Age: 55 Year
  Sex: Female

DRUGS (6)
  1. METHADONE HYDROCHLORIDE [Concomitant]
     Dosage: 10 MG, BID
     Route: 048
  2. ROPIVACAINE HYDROCHLORIDE [Concomitant]
     Dosage: 0.5 %, BOLUS
  3. MORPHINE SULFATE [Suspect]
     Indication: PAIN
     Dosage: 40 MG, DAILY
     Route: 042
  4. KETAMINE HCL [Concomitant]
     Dosage: 5 MG, Q6H
     Route: 048
  5. ROPIVACAINE HYDROCHLORIDE [Concomitant]
     Dosage: 8 ML, Q1H INFUSION
  6. FENTANYL [Concomitant]
     Dosage: 75 MCG, Q1H
     Route: 062

REACTIONS (4)
  - CONFUSIONAL STATE [None]
  - DRUG INTERACTION [None]
  - INADEQUATE ANALGESIA [None]
  - DELIRIUM [None]
